FAERS Safety Report 8268132 (Version 6)
Quarter: 2013Q2

REPORT INFORMATION
  Report Type: Report from Study
  Country: TH (occurrence: TH)
  Receive Date: 20111130
  Receipt Date: 20130507
  Transmission Date: 20140414
  Serious: Yes (Hospitalization)
  Sender: FDA-Public Use
  Company Number: TH-JNJFOC-20111109007

PATIENT
  Age: 26 Year
  Sex: Male
  Weight: 46 kg

DRUGS (7)
  1. INVEGA SUSTENNA [Suspect]
     Indication: SCHIZOPHRENIA
     Route: 030
     Dates: start: 20120518
  2. INVEGA SUSTENNA [Suspect]
     Indication: SCHIZOPHRENIA
     Route: 030
     Dates: start: 20110929
  3. INVEGA SUSTENNA [Suspect]
     Indication: SCHIZOPHRENIA
     Route: 030
     Dates: start: 20111103
  4. TRAZODONE [Concomitant]
     Indication: INSOMNIA
     Route: 065
     Dates: start: 20111114, end: 20120531
  5. TRAZODONE [Concomitant]
     Indication: INSOMNIA
     Route: 065
     Dates: start: 20110928, end: 20111011
  6. TRAZODONE [Concomitant]
     Indication: INSOMNIA
     Route: 065
     Dates: start: 20111012, end: 20111102
  7. TRAZODONE [Concomitant]
     Indication: INSOMNIA
     Route: 065
     Dates: start: 20111103, end: 20111113

REACTIONS (1)
  - Psychotic disorder [Recovered/Resolved]
